FAERS Safety Report 7073266-X (Version None)
Quarter: 2010Q4

REPORT INFORMATION
  Report Type: 
  Country: None (occurrence: None)
  Receive Date: 20101029
  Receipt Date: 20100519
  Transmission Date: 20110411
  Serious: No
  Sender: FDA-Public Use
  Company Number: A0860405A

PATIENT
  Sex: Female

DRUGS (3)
  1. ADVAIR DISKUS 100/50 [Suspect]
     Indication: EMPHYSEMA
     Dosage: 1PUFF TWICE PER DAY
     Route: 055
     Dates: start: 19990101
  2. SPIRIVA [Concomitant]
  3. UNSPECIFIED MEDICATIONS [Concomitant]

REACTIONS (4)
  - AGEUSIA [None]
  - CHEILITIS [None]
  - PARAESTHESIA ORAL [None]
  - TONGUE DISORDER [None]
